FAERS Safety Report 13225692 (Version 1)
Quarter: 2017Q1

REPORT INFORMATION
  Report Type: Spontaneous
  Country: IE (occurrence: IE)
  Receive Date: 20170213
  Receipt Date: 20170213
  Transmission Date: 20170428
  Serious: Yes (Other)
  Sender: FDA-Public Use
  Company Number: IE-GLAXOSMITHKLINE-IE2017GSK019092

PATIENT
  Sex: Male

DRUGS (4)
  1. NEOTIGASON [Suspect]
     Active Substance: ACITRETIN
     Dosage: 10 MG, Z, EVERY OTHER DAY
  2. NEOTIGASON [Suspect]
     Active Substance: ACITRETIN
     Dosage: 10 MG, QD
  3. NEOTIGASON [Suspect]
     Active Substance: ACITRETIN
     Dosage: 10 MG, QD
  4. NEOTIGASON [Suspect]
     Active Substance: ACITRETIN
     Indication: PRODUCT USED FOR UNKNOWN INDICATION
     Dosage: 5 MG, QD
     Route: 048

REACTIONS (1)
  - Senile ankylosing vertebral hyperostosis [Not Recovered/Not Resolved]
